FAERS Safety Report 4269534-7 (Version None)
Quarter: 2004Q1

REPORT INFORMATION
  Report Type: 
  Country: None (occurrence: None)
  Receive Date: 20040113
  Receipt Date: 20040105
  Transmission Date: 20041129
  Serious: Yes (Hospitalization)
  Sender: FDA-Public Use
  Company Number: US-BRISTOL-MYERS SQUIBB COMPANY-12469797

PATIENT
  Age: 79 Year
  Sex: Male
  Weight: 76 kg

DRUGS (9)
  1. CARBOPLATIN [Suspect]
     Route: 042
     Dates: start: 20031231, end: 20031231
  2. CARBOPLATIN [Suspect]
     Route: 042
     Dates: start: 20031231, end: 20031231
  3. BENADRYL [Concomitant]
     Indication: PREMEDICATION
  4. DECADRON [Concomitant]
     Indication: PREMEDICATION
  5. ANZEMET [Concomitant]
     Indication: PREMEDICATION
  6. LOPRESSOR [Concomitant]
  7. CASODEX [Concomitant]
  8. FLOMAX [Concomitant]
  9. SYNTHROID [Concomitant]
     Dosage: } 1 YEAR

REACTIONS (4)
  - CHEST DISCOMFORT [None]
  - CHILLS [None]
  - PRURITUS [None]
  - RASH ERYTHEMATOUS [None]
